APPROVED DRUG PRODUCT: HALOPERIDOL DECANOATE
Active Ingredient: HALOPERIDOL DECANOATE
Strength: EQ 50MG BASE/ML
Dosage Form/Route: INJECTABLE;INJECTION
Application: A209101 | Product #001 | TE Code: AO
Applicant: SOMERSET THERAPEUTICS LLC
Approved: Jul 3, 2018 | RLD: No | RS: No | Type: RX